FAERS Safety Report 7386411 (Version 5)
Quarter: 2014Q3

REPORT INFORMATION
  Report Type: Report from Study
  Country: CA (occurrence: CA)
  Receive Date: 20100513
  Receipt Date: 20140820
  Transmission Date: 20150326
  Serious: Yes (Death, Hospitalization, Other)
  Sender: FDA-Public Use
  Company Number: PHHY2010CA28965

PATIENT
  Age: 59 Year
  Sex: Female

DRUGS (4)
  1. SANDOSTATIN LAR DEPOT [Suspect]
     Active Substance: OCTREOTIDE ACETATE
     Dosage: 40 MG, EVERY 2 WEEKS
     Route: 030
     Dates: end: 20140709
  2. IRON [Concomitant]
     Active Substance: IRON
     Dosage: UNK UKN, UNK
  3. SANDOSTATIN LAR DEPOT [Suspect]
     Active Substance: OCTREOTIDE ACETATE
     Indication: NEUROENDOCRINE TUMOUR
     Dosage: 30 MG EVERY 4 WEEKS
     Route: 030
     Dates: start: 20080616
  4. SANDOSTATIN LAR DEPOT [Suspect]
     Active Substance: OCTREOTIDE ACETATE
     Dosage: 30 MG, BIW
     Route: 030

REACTIONS (20)
  - Dizziness [Unknown]
  - Anaemia [Unknown]
  - Gastrointestinal disorder [Not Recovered/Not Resolved]
  - Death [Fatal]
  - Metastases to liver [Unknown]
  - Pain [Not Recovered/Not Resolved]
  - Renal impairment [Unknown]
  - Syncope [Unknown]
  - Transfusion reaction [Unknown]
  - Fatigue [Unknown]
  - Renal disorder [Unknown]
  - Haemoglobin decreased [Unknown]
  - Scab [Unknown]
  - Gait disturbance [Unknown]
  - Platelet count decreased [Unknown]
  - Localised oedema [Unknown]
  - Liver disorder [Not Recovered/Not Resolved]
  - Tumour pain [Unknown]
  - Malignant neoplasm progression [Unknown]
  - Hypothyroidism [Unknown]

NARRATIVE: CASE EVENT DATE: 20130808
